FAERS Safety Report 8931774 (Version 2)
Quarter: 2012Q4

REPORT INFORMATION
  Report Type: 
  Country: GB (occurrence: GB)
  Receive Date: 20121128
  Receipt Date: 20121217
  Transmission Date: 20130627
  Serious: Yes (Hospitalization)
  Sender: FDA-Public Use
  Company Number: GB-TEVA-371695ISR

PATIENT
  Age: 51 Year
  Sex: Female
  Weight: 36 kg

DRUGS (23)
  1. VINCRISTINE [Suspect]
     Indication: NON-HODGKIN^S LYMPHOMA
     Route: 042
     Dates: start: 20111011, end: 20111011
  2. RITUXIMAB [Suspect]
     Indication: NON-HODGKIN^S LYMPHOMA
     Route: 042
     Dates: start: 20111011, end: 20111011
  3. PENICILLIN [Suspect]
     Indication: PRODUCT USED FOR UNKNOWN INDICATION
     Dates: end: 20111011
  4. CYCLOPHOSPHAMIDE [Suspect]
     Indication: NON-HODGKIN^S LYMPHOMA
     Route: 042
     Dates: start: 20111011, end: 20111011
  5. PREDNISONE [Suspect]
     Indication: NON-HODGKIN^S LYMPHOMA
     Route: 048
     Dates: start: 20111011, end: 20111015
  6. CHLORPHENIRAMINE [Concomitant]
     Indication: PRODUCT USED FOR UNKNOWN INDICATION
     Dates: start: 20111010
  7. SENNA [Concomitant]
     Indication: CONSTIPATION
     Dates: start: 20111010, end: 20120308
  8. SODIUM CHLORIDE [Concomitant]
     Indication: TUMOUR LYSIS SYNDROME
     Dates: start: 20111010, end: 20111010
  9. ONDANSETRON [Concomitant]
     Indication: TUMOUR LYSIS SYNDROME
     Dates: start: 20111011, end: 20120308
  10. MAGNESIUM HYDROXIDE [Concomitant]
     Indication: CONSTIPATION
     Dates: start: 20111101
  11. CETIRIZINE [Concomitant]
     Indication: ANTIALLERGIC THERAPY
     Dates: start: 20111101, end: 20120214
  12. SANDO-K [Concomitant]
     Indication: DIARRHOEA
     Dates: start: 20111027, end: 20111029
  13. MOVICOL [Concomitant]
     Indication: CONSTIPATION
     Dates: start: 20111023, end: 20111029
  14. BETNOVATE [Concomitant]
     Indication: HYPERSENSITIVITY
     Dates: start: 20111028, end: 20111103
  15. DIPROBASE [Concomitant]
     Indication: HYPERSENSITIVITY
     Dates: start: 20111026, end: 20111101
  16. GRANULOCYTE-COLONY STIMULATING FACTOR [Concomitant]
     Indication: NEUTROPENIA
     Dates: start: 20111101, end: 20120315
  17. ALLOPURINOL [Concomitant]
     Indication: TUMOUR LYSIS SYNDROME
     Route: 065
     Dates: start: 20111010, end: 20111215
  18. METOCLOPRAMIDE [Concomitant]
     Indication: VOMITING
     Dates: start: 20111101, end: 20111101
  19. BUSCOPAN [Concomitant]
     Indication: ABDOMINAL PAIN UPPER
  20. CODEINE [Concomitant]
     Indication: ABDOMINAL PAIN UPPER
     Dates: start: 20111101, end: 20111101
  21. HYDROCORTISONE [Concomitant]
     Indication: ANAPHYLACTIC REACTION
     Dates: start: 20111101, end: 20120907
  22. PARACETAMOL [Concomitant]
     Indication: PYREXIA
     Dates: start: 20111011
  23. OMEPRAZOLE [Concomitant]
     Indication: DYSPEPSIA
     Route: 065
     Dates: start: 20111010, end: 20120308

REACTIONS (3)
  - Febrile neutropenia [Recovered/Resolved]
  - Drug hypersensitivity [Recovered/Resolved]
  - Abdominal pain [Recovered/Resolved]
